FAERS Safety Report 7372296-8 (Version None)
Quarter: 2011Q1

REPORT INFORMATION
  Report Type: 
  Country: None (occurrence: None)
  Receive Date: 20110324
  Receipt Date: 20110316
  Transmission Date: 20110831
  Serious: Yes (Hospitalization)
  Sender: FDA-Public Use
  Company Number: B0537445A

PATIENT
  Sex: Female

DRUGS (3)
  1. PREDNISONE [Suspect]
     Indication: MULTIPLE MYELOMA
     Dosage: 100MG PER DAY
     Route: 048
     Dates: start: 20071129, end: 20080202
  2. LENALIDOMIDE [Suspect]
     Indication: MULTIPLE MYELOMA
     Dosage: 5MG PER DAY
     Route: 048
     Dates: start: 20071129, end: 20080219
  3. MELPHALAN [Suspect]
     Indication: MULTIPLE MYELOMA
     Dosage: 6MG PER DAY
     Route: 048
     Dates: start: 20071129, end: 20080202

REACTIONS (6)
  - COLITIS [None]
  - ABDOMINAL PAIN LOWER [None]
  - NEUTROPENIA [None]
  - DIVERTICULITIS [None]
  - PYREXIA [None]
  - CHANGE OF BOWEL HABIT [None]
